FAERS Safety Report 8495829 (Version 2)
Quarter: 2017Q2

REPORT INFORMATION
  Report Type: Spontaneous
  Country: US (occurrence: US)
  Receive Date: 20120405
  Receipt Date: 20170414
  Transmission Date: 20170830
  Serious: Yes (Hospitalization, Other)
  Sender: FDA-Public Use
  Company Number: US-PFIZER INC-2012082961

PATIENT
  Age: 19 Year
  Sex: Female

DRUGS (2)
  1. STELAZINE [Suspect]
     Active Substance: TRIFLUOPERAZINE HYDROCHLORIDE
     Dosage: 4 DF, UNK
     Route: 048
  2. MISOPROSTOL. [Suspect]
     Active Substance: MISOPROSTOL
     Dosage: 30 DF, OF 200 UG

REACTIONS (11)
  - Suicide attempt [Recovered/Resolved]
  - Metabolic acidosis [Recovered/Resolved]
  - Intentional overdose [Recovered/Resolved]
  - Foetal death [Unknown]
  - Feeling hot [Recovered/Resolved]
  - Dyspnoea [Recovered/Resolved]
  - Hyperthermia [Unknown]
  - Hypoxia [Recovered/Resolved]
  - Rhabdomyolysis [Unknown]
  - Uterine hypertonus [Unknown]
  - Chills [Unknown]
